FAERS Safety Report 8109347 (Version 3)
Quarter: 2013Q4

REPORT INFORMATION
  Report Type: Spontaneous
  Country: US (occurrence: US)
  Receive Date: 20110826
  Receipt Date: 20131122
  Transmission Date: 20140711
  Serious: Yes (Hospitalization, Other)
  Sender: FDA-Public Use
  Company Number: US-BAYER-2011-075220

PATIENT
  Age: 25 Year
  Sex: Female
  Weight: 77.1 kg

DRUGS (6)
  1. YASMIN [Suspect]
     Dosage: UNK
     Dates: start: 2005, end: 2005
  2. CELEXA [Concomitant]
     Indication: DEPRESSION
     Dosage: UNK
     Dates: start: 2005, end: 2012
  3. CELEXA [Concomitant]
     Indication: POST-TRAUMATIC STRESS DISORDER
  4. CLONAZEPAM [Concomitant]
     Indication: DEPRESSION
     Dosage: UNK
     Dates: start: 2005, end: 2012
  5. CLONAZEPAM [Concomitant]
     Indication: POST-TRAUMATIC STRESS DISORDER
  6. PROVENTIL [Concomitant]
     Dosage: UNK
     Dates: start: 20091119

REACTIONS (4)
  - Gallbladder injury [None]
  - Mental disorder [None]
  - Injury [None]
  - Cholecystitis acute [None]
